FAERS Safety Report 10500910 (Version 5)
Quarter: 2014Q4

REPORT INFORMATION
  Report Type: Report from Study
  Country: CA (occurrence: CA)
  Receive Date: 20141007
  Receipt Date: 20141029
  Transmission Date: 20150528
  Serious: Yes (Other)
  Sender: FDA-Public Use
  Company Number: CA-ROCHE-1237139

PATIENT
  Age: 57 Year
  Sex: Female
  Weight: 74 kg

DRUGS (14)
  1. ACTEMRA [Suspect]
     Active Substance: TOCILIZUMAB
     Indication: RHEUMATOID ARTHRITIS
     Route: 042
     Dates: start: 20130515
  2. NAPROXEN. [Concomitant]
     Active Substance: NAPROXEN
     Route: 065
  3. PAXIL (CANADA) [Concomitant]
  4. VENTOLIN [Concomitant]
     Active Substance: ALBUTEROL SULFATE
  5. DIOVAN HCT [Concomitant]
     Active Substance: HYDROCHLOROTHIAZIDE\VALSARTAN
  6. TRAZODONE [Concomitant]
     Active Substance: TRAZODONE HYDROCHLORIDE
  7. DOMPERIDONE [Concomitant]
     Active Substance: DOMPERIDONE
  8. CLONAZEPAM. [Concomitant]
     Active Substance: CLONAZEPAM
     Route: 065
  9. ALENDRONAT [Concomitant]
     Active Substance: ALENDRONATE SODIUM
  10. SINGULAIR [Concomitant]
     Active Substance: MONTELUKAST SODIUM
  11. ZOPICLONE [Concomitant]
     Active Substance: ZOPICLONE
  12. PREDNISONE. [Concomitant]
     Active Substance: PREDNISONE
  13. IMURAN [Concomitant]
     Active Substance: AZATHIOPRINE
  14. QUININE [Concomitant]
     Active Substance: QUININE

REACTIONS (9)
  - Asthma [Unknown]
  - Bronchitis [Recovered/Resolved]
  - Nasopharyngitis [Unknown]
  - Lung infection [Unknown]
  - Infection [Unknown]
  - Headache [Recovered/Resolved]
  - Hypertension [Unknown]
  - Asthma [Unknown]
  - Influenza [Recovered/Resolved]

NARRATIVE: CASE EVENT DATE: 20130607
